FAERS Safety Report 9293757 (Version 1)
Quarter: 2013Q2

REPORT INFORMATION
  Report Type: Spontaneous
  Country: NZ (occurrence: NZ)
  Receive Date: 20130516
  Receipt Date: 20130516
  Transmission Date: 20140414
  Serious: Yes (Death)
  Sender: FDA-Public Use
  Company Number: NZ-B.I. PHARMACEUTICALS,INC./RIDGEFIELD-2013-AU-00573AU

PATIENT
  Age: 77 Year
  Sex: Male

DRUGS (6)
  1. PRADAXA [Suspect]
     Indication: ATRIAL FIBRILLATION
     Dosage: 220 MG
     Dates: start: 20111101
  2. DIGOXIN [Concomitant]
  3. SIMVASTATIN [Concomitant]
     Dosage: 40 MG
     Route: 048
  4. TAMSULOSIN [Concomitant]
     Dosage: 0.4 MG
  5. FRUSEMIDE [Concomitant]
  6. BOOSTRIX [Concomitant]
     Dates: start: 20130416, end: 20130416

REACTIONS (10)
  - Cerebral haemorrhage [Fatal]
  - Confusional state [Unknown]
  - Hypothermia [Unknown]
  - Tachycardia [Unknown]
  - Incontinence [Unknown]
  - Hemiparesis [Unknown]
  - Hemisensory neglect [Unknown]
  - Aphasia [Unknown]
  - Hemiplegia [Unknown]
  - Sinusitis [Unknown]
